FAERS Safety Report 9357854 (Version 1)
Quarter: 2013Q2

REPORT INFORMATION
  Report Type: Report from Study
  Country: LB (occurrence: LB)
  Receive Date: 20130620
  Receipt Date: 20130620
  Transmission Date: 20140414
  Serious: Yes (Life-Threatening, Hospitalization)
  Sender: FDA-Public Use
  Company Number: LB-SANOFI-AVENTIS-2013SA059528

PATIENT
  Age: 93 Year
  Sex: Male

DRUGS (11)
  1. LANTUS SOLOSTAR [Suspect]
     Indication: DIABETES MELLITUS
     Dosage: DOSE:10 UNIT(S)
     Route: 058
  2. LANTUS SOLOSTAR [Suspect]
     Indication: DIABETES MELLITUS
     Dosage: DOSE:20 UNIT(S)
     Route: 058
  3. SOLOSTAR [Suspect]
     Indication: DEVICE THERAPY
  4. GALVUSMET [Concomitant]
     Indication: DIABETES MELLITUS
  5. ALDACTONE [Concomitant]
  6. LASIX [Concomitant]
  7. DIOVANE [Concomitant]
     Route: 048
  8. LANOXIN [Concomitant]
     Route: 048
  9. VASTAREL [Concomitant]
     Route: 048
  10. CORVASAL [Concomitant]
     Route: 048
  11. OMEPRAZOLE [Concomitant]
     Route: 048

REACTIONS (1)
  - Myocardial infarction [Recovered/Resolved]
